FAERS Safety Report 12175766 (Version 1)
Quarter: 2016Q1

REPORT INFORMATION
  Report Type: Spontaneous
  Country: US (occurrence: US)
  Receive Date: 20160314
  Receipt Date: 20160314
  Transmission Date: 20160526
  Serious: No
  Sender: FDA-Public Use
  Company Number: US-PFIZER INC-2016095048

PATIENT
  Age: 70 Year
  Sex: Male
  Weight: 99.79 kg

DRUGS (5)
  1. PHENOBARBITAL. [Concomitant]
     Active Substance: PHENOBARBITAL
     Indication: SEIZURE
     Dosage: 30MG TABLET, 2 TABLETS TWICE DAILY
  2. HYDROCHLOROTHIAZIDE/TRIAMTERENE [Concomitant]
     Indication: MENIERE^S DISEASE
     Dosage: TRIAMTERENE 37.5MG/HYDROCHLOROTHIAZIDE 25MG CAPSULE
     Dates: start: 2013
  3. CELECOXIB. [Suspect]
     Active Substance: CELECOXIB
     Indication: OSTEOARTHRITIS
     Dosage: ASSUME IT WAS THE 200MG CAPSULES
  4. PHENYTOIN. [Concomitant]
     Active Substance: PHENYTOIN
     Indication: SEIZURE
     Dosage: 100MG CAPSULE, 2 IN THE MORNING, 3 IN THE EVENING
     Dates: start: 1965
  5. ATORVASTATIN [Concomitant]
     Active Substance: ATORVASTATIN
     Indication: BLOOD CHOLESTEROL ABNORMAL
     Dosage: 10MG TABLET, ONCE A DAY

REACTIONS (3)
  - Drug effect incomplete [Unknown]
  - Gout [Unknown]
  - Malaise [Unknown]

NARRATIVE: CASE EVENT DATE: 2015
